FAERS Safety Report 23137765 (Version 1)
Quarter: 2023Q4

REPORT INFORMATION
  Report Type: Report from Study
  Country: CA (occurrence: CA)
  Receive Date: 20231102
  Receipt Date: 20231102
  Transmission Date: 20240110
  Serious: Yes (Other)
  Sender: FDA-Public Use
  Company Number: CA-UNITED THERAPEUTICS-UNT-2023-031114

PATIENT
  Age: 13 Year
  Sex: Male
  Weight: 28.6 kg

DRUGS (6)
  1. UNITUXIN [Suspect]
     Active Substance: DINUTUXIMAB
     Indication: Neuroblastoma recurrent
     Dosage: UNK, CYCLICAL (CYCLE 3) (TOTAL DOSE ADMINISTERED THIS COURSE: 39.2 MG)
     Route: 041
     Dates: start: 20230124, end: 20230126
  2. UNITUXIN [Suspect]
     Active Substance: DINUTUXIMAB
     Dosage: UNK, CYCLICAL (CYCLE 2)
     Route: 041
  3. UNITUXIN [Suspect]
     Active Substance: DINUTUXIMAB
     Dosage: UNK, CYCLICAL (CYCLE 1)
     Route: 041
     Dates: start: 20221205
  4. MAGROLIMAB [Suspect]
     Active Substance: MAGROLIMAB
     Indication: Neuroblastoma recurrent
     Dosage: UNK (CYCLE 3) (TOTAL DOSE ADMINISTERED THIS COURSE: 590 MG)
     Route: 065
     Dates: start: 20230123, end: 20230123
  5. MAGROLIMAB [Suspect]
     Active Substance: MAGROLIMAB
     Dosage: UNK (CYCLE 2)
     Route: 065
  6. MAGROLIMAB [Suspect]
     Active Substance: MAGROLIMAB
     Dosage: UNK (CYCLE 1)
     Route: 065
     Dates: start: 20221205

REACTIONS (2)
  - Infusion related reaction [Recovered/Resolved]
  - Localised oedema [Recovered/Resolved]

NARRATIVE: CASE EVENT DATE: 20230126
